FAERS Safety Report 4650430-8 (Version None)
Quarter: 2005Q2

REPORT INFORMATION
  Report Type: 
  Country: None (occurrence: None)
  Receive Date: 20050429
  Receipt Date: 20050420
  Transmission Date: 20051028
  Serious: Yes (Hospitalization)
  Sender: FDA-Public Use
  Company Number: 2004074468

PATIENT
  Age: 71 Year
  Sex: Male
  Weight: 64.5 kg

DRUGS (3)
  1. AMLODIPINE [Suspect]
     Indication: ESSENTIAL HYPERTENSION
     Dosage: (1 IN 1 D), ORAL
     Route: 048
     Dates: start: 20030801, end: 20040707
  2. NORVASC [Suspect]
     Indication: ESSENTIAL HYPERTENSION
     Dosage: (1 IN  1 D), ORAL
     Route: 048
     Dates: start: 20040727, end: 20040913
  3. QUINAPRIL HCL [Concomitant]

REACTIONS (2)
  - DRUG ERUPTION [None]
  - LICHEN PLANUS [None]
